FAERS Safety Report 5476168-5 (Version None)
Quarter: 2007Q4

REPORT INFORMATION
  Report Type: 
  Country: None (occurrence: None)
  Receive Date: 20071003
  Receipt Date: 20071001
  Transmission Date: 20080405
  Serious: Yes (Hospitalization)
  Sender: FDA-Public Use
  Company Number: SE-JNJFOC-20070903547

PATIENT
  Age: 88 Year
  Sex: Male

DRUGS (6)
  1. RISPERDAL [Suspect]
     Indication: PSYCHOTIC DISORDER
     Dosage: ORAL DOSAGE REGIMEN 250 RG D
     Route: 048
     Dates: start: 20070621, end: 20070626
  2. ACETAMINOPHEN [Concomitant]
  3. CIPROXIN [Concomitant]
  4. OXASCAND [Concomitant]
  5. TROMBYL [Concomitant]
  6. ZOLPIDEM TARTRATE [Concomitant]

REACTIONS (2)
  - CEREBRAL INFARCTION [None]
  - CEREBRAL VENOUS THROMBOSIS [None]
